FAERS Safety Report 13450502 (Version 2)
Quarter: 2017Q2

REPORT INFORMATION
  Report Type: Report from Study
  Country: None (occurrence: US)
  Receive Date: 20170418
  Receipt Date: 20170626
  Transmission Date: 20170830
  Serious: No
  Sender: FDA-Public Use
  Company Number: US-ABBVIE-16K-163-1801610-00

PATIENT
  Age: 63 Year
  Sex: Female

DRUGS (2)
  1. HUMIRA [Suspect]
     Active Substance: ADALIMUMAB
     Route: 058
     Dates: start: 20170228
  2. HUMIRA [Suspect]
     Active Substance: ADALIMUMAB
     Indication: RHEUMATOID ARTHRITIS
     Route: 058
     Dates: start: 20161121, end: 201702

REACTIONS (25)
  - Peripheral swelling [Unknown]
  - Mobility decreased [Unknown]
  - Poor quality sleep [Unknown]
  - Pain [Unknown]
  - Muscle spasms [Unknown]
  - Chills [Unknown]
  - Musculoskeletal pain [Unknown]
  - Viral upper respiratory tract infection [Unknown]
  - Pain in extremity [Unknown]
  - Arthralgia [Unknown]
  - Depression [Unknown]
  - Joint stiffness [Unknown]
  - Headache [Not Recovered/Not Resolved]
  - Impaired self-care [Unknown]
  - Loss of personal independence in daily activities [Unknown]
  - Pain in extremity [Unknown]
  - Oropharyngeal pain [Unknown]
  - Fatigue [Unknown]
  - Arthralgia [Unknown]
  - Peripheral swelling [Unknown]
  - Gait disturbance [Unknown]
  - Joint swelling [Unknown]
  - Anxiety [Unknown]
  - Influenza [Unknown]
  - Arthralgia [Unknown]

NARRATIVE: CASE EVENT DATE: 201611
